FAERS Safety Report 24594181 (Version 1)
Quarter: 2024Q4

REPORT INFORMATION
  Report Type: Spontaneous
  Country: US (occurrence: US)
  Receive Date: 20241108
  Receipt Date: 20241108
  Transmission Date: 20250115
  Serious: Yes (Other)
  Sender: AMGEN
  Company Number: US-AMGEN-USASP2024216474

PATIENT
  Age: 12 Year
  Sex: Female

DRUGS (5)
  1. RITUXIMAB [Suspect]
     Active Substance: RITUXIMAB
     Indication: Hypertriglyceridaemia
     Dosage: UNK
     Route: 065
  2. PREDNISONE [Suspect]
     Active Substance: PREDNISONE
     Indication: Systemic lupus erythematosus
     Dosage: UNK
     Route: 065
  3. METHYLPREDNISOLONE [Concomitant]
     Active Substance: METHYLPREDNISOLONE
     Dosage: 1000 MILLIGRAM, 3 DAYS
     Route: 040
  4. MYCOPHENOLATE MOFETIL [Concomitant]
     Active Substance: MYCOPHENOLATE MOFETIL
  5. HYDROXYCHLOROQUINE [Concomitant]
     Active Substance: HYDROXYCHLOROQUINE

REACTIONS (12)
  - Oesophageal candidiasis [Unknown]
  - Pancreatitis acute [Unknown]
  - Pulmonary oedema [Unknown]
  - Hypogammaglobulinaemia [Unknown]
  - Pancreatic pseudocyst [Unknown]
  - Venous thrombosis [Unknown]
  - Drug effective for unapproved indication [Unknown]
  - Hypoglycaemia [Unknown]
  - Superficial vein thrombosis [Unknown]
  - Off label use [Unknown]
  - Anaemia [Unknown]
  - Hypotension [Unknown]
